FAERS Safety Report 5078566-0 (Version None)
Quarter: 2006Q3

REPORT INFORMATION
  Report Type: 
  Country: None (occurrence: None)
  Receive Date: 20060811
  Receipt Date: 20060613
  Transmission Date: 20061208
  Serious: Yes (Hospitalization)
  Sender: FDA-Public Use
  Company Number: NZ-MERCK-0606NZL00013

PATIENT
  Age: 67 Year
  Sex: Female

DRUGS (3)
  1. FOSAMAX [Suspect]
     Indication: OSTEOPOROSIS
     Route: 048
     Dates: start: 20050925, end: 20051016
  2. VITAMINS (UNSPECIFIED) [Concomitant]
     Route: 048
  3. CALCIUM CARBONATE [Concomitant]
     Route: 048

REACTIONS (5)
  - CONJUNCTIVITIS [None]
  - EXOPHTHALMOS [None]
  - IIIRD NERVE PARALYSIS [None]
  - OEDEMA [None]
  - PAIN IN EXTREMITY [None]
